FAERS Safety Report 5860388-1 (Version None)
Quarter: 2008Q3

REPORT INFORMATION
  Report Type: 
  Country: None (occurrence: None)
  Receive Date: 20080818
  Receipt Date: 20080702
  Transmission Date: 20090109
  Serious: No
  Sender: FDA-Public Use
  Company Number: WAES 0807USA00696

PATIENT
  Sex: Female

DRUGS (1)
  1. JANUVIA [Suspect]
     Dosage: 100 MG/DAILY/PO ; 100 MG/DAILY/PO ; 100 MG/DAILY/PO
     Route: 048

REACTIONS (4)
  - ARTHRALGIA [None]
  - OEDEMA [None]
  - RASH [None]
  - RESPIRATORY TRACT INFECTION [None]
